FAERS Safety Report 8157182-8 (Version None)
Quarter: 2012Q1

REPORT INFORMATION
  Report Type: 
  Country: None (occurrence: None)
  Receive Date: 20120209
  Receipt Date: 20120202
  Transmission Date: 20120608
  Serious: Yes (Disabling, Other)
  Sender: FDA-Public Use
  Company Number: 2012031001

PATIENT
  Sex: Female

DRUGS (1)
  1. HIZENTRA [Suspect]
     Dosage: (2.5 ML SUBCUTANEOUS)
     Route: 058
     Dates: start: 20120131

REACTIONS (5)
  - HEADACHE [None]
  - PARKINSONISM [None]
  - TARDIVE DYSKINESIA [None]
  - DYSKINESIA [None]
  - FATIGUE [None]
